FAERS Safety Report 23487576 (Version 1)
Quarter: 2024Q1

REPORT INFORMATION
  Report Type: Spontaneous
  Country: US (occurrence: US)
  Receive Date: 20240206
  Receipt Date: 20240206
  Transmission Date: 20240409
  Serious: Yes (Other)
  Sender: FDA-Public Use
  Company Number: US-ABBVIE-5619608

PATIENT
  Sex: Male

DRUGS (1)
  1. SKYRIZI [Suspect]
     Active Substance: RISANKIZUMAB-RZAA
     Indication: Crohn^s disease
     Route: 042

REACTIONS (6)
  - Intestinal obstruction [Unknown]
  - Abdominal pain [Unknown]
  - Gastritis [Unknown]
  - Gastrointestinal inflammation [Unknown]
  - Gastrointestinal motility disorder [Unknown]
  - Abdominal discomfort [Unknown]
